FAERS Safety Report 13764198 (Version 2)
Quarter: 2017Q3

REPORT INFORMATION
  Report Type: Spontaneous
  Country: US (occurrence: US)
  Receive Date: 20170718
  Receipt Date: 20170811
  Transmission Date: 20171127
  Serious: Yes (Hospitalization)
  Sender: FDA-Public Use
  Company Number: US-PFIZER INC-2017307597

PATIENT
  Age: 62 Year
  Sex: Female
  Weight: 58.6 kg

DRUGS (15)
  1. PROLASTIN [Concomitant]
     Active Substance: .ALPHA.1-PROTEINASE INHIBITOR HUMAN
     Dosage: UNK UNK, WEEKLY (ONCE A WEEK)
     Route: 042
  2. RAPAMUNE [Suspect]
     Active Substance: SIROLIMUS
     Indication: LUNG TRANSPLANT
     Dosage: 0.5MG TABLET ONCE A DAY
     Dates: start: 2016
  3. SYMBICORT [Concomitant]
     Active Substance: BUDESONIDE\FORMOTEROL FUMARATE DIHYDRATE
     Dosage: 2 DF, 2X/DAY(2 PUFFS-2 TIMES A DAY)
  4. MAGNESIUM [Concomitant]
     Active Substance: MAGNESIUM
     Dosage: 400 MG, 2X/DAY
  5. OMEPRAZOLE. [Concomitant]
     Active Substance: OMEPRAZOLE
     Dosage: 40 MG, 1X/DAY(40MG MORNING)
  6. AZITHROMYCIN ANHYDROUS. [Concomitant]
     Active Substance: AZITHROMYCIN ANHYDROUS
     Dosage: 250 ML, ALTERNATE DAY (M,W,F)
  7. ACYCLOVIR. [Concomitant]
     Active Substance: ACYCLOVIR
     Dosage: 400 ML, 2X/DAY
  8. VITAMIN C [Concomitant]
     Active Substance: ASCORBIC ACID
     Dosage: UNK UNK, 1X/DAY (MORNING)
  9. LISINOPRIL. [Concomitant]
     Active Substance: LISINOPRIL
     Dosage: UNK, 1X/DAY (2.5M- MORNING)
  10. PRAVASTATIN. [Concomitant]
     Active Substance: PRAVASTATIN
     Dosage: 20 MG, 1X/DAY (20MG, EVENING)
  11. SULFAMETHOXAZOLE AND TRIMETHOPRIM [Concomitant]
     Active Substance: SULFAMETHOXAZOLE\TRIMETHOPRIM
     Dosage: UNK UNK, (SULFAMETHOXAZOLE-800MG/TRIMETHOPRIM-160MG)(ALTERNATE DAY)
  12. CALCIUM + VITAMIN D3 [Concomitant]
     Active Substance: CALCIUM CARBONATE\CHOLECALCIFEROL
     Dosage: UNK UNK, 2X/DAY
  13. TRAZODONE [Concomitant]
     Active Substance: TRAZODONE HYDROCHLORIDE
     Dosage: 50 MG, 1X/DAY (50MG- BEDTIME)
  14. RAPAMUNE [Suspect]
     Active Substance: SIROLIMUS
     Dosage: 5 MG, 1X/DAY
  15. PROGRAF [Concomitant]
     Active Substance: TACROLIMUS\TACROLIMUS ANHYDROUS
     Dosage: UNK UNK, 2X/DAY (.5X4 (2 TIMES A DAY))

REACTIONS (2)
  - Hypercapnia [Recovered/Resolved]
  - Product use in unapproved indication [Unknown]
